FAERS Safety Report 7981902-6 (Version None)
Quarter: 2011Q4

REPORT INFORMATION
  Report Type: 
  Country: None (occurrence: None)
  Receive Date: 20111213
  Receipt Date: 20111129
  Transmission Date: 20120403
  Serious: Yes (Hospitalization)
  Sender: FDA-Public Use
  Company Number: 2011AP002897

PATIENT
  Age: 52 Year
  Sex: Male

DRUGS (6)
  1. HYDROCHLORIDE [Concomitant]
  2. RANITIDINE [Concomitant]
  3. DICYCLOVERINE [Concomitant]
  4. SULFASALAZINE [Concomitant]
  5. FLUCONAZOLE [Concomitant]
  6. LITHIUM CARBONATE [Suspect]
     Indication: PRODUCT USED FOR UNKNOWN INDICATION

REACTIONS (10)
  - RENAL FAILURE [None]
  - MENTAL STATUS CHANGES [None]
  - ANTIPSYCHOTIC DRUG LEVEL INCREASED [None]
  - DRY SKIN [None]
  - HYPOPHAGIA [None]
  - HEADACHE [None]
  - SPEECH DISORDER [None]
  - MUCOSAL DRYNESS [None]
  - AGITATION [None]
  - TOXICITY TO VARIOUS AGENTS [None]
